FAERS Safety Report 10947970 (Version 1)
Quarter: 2015Q1

REPORT INFORMATION
  Report Type: Spontaneous
  Country: US (occurrence: None)
  Receive Date: 20150320
  Receipt Date: 20150320
  Transmission Date: 20150721
  Serious: Yes (Death)
  Sender: FDA-Public Use
  Company Number: 2015COR00058

PATIENT
  Age: 21 Year
  Sex: Female

DRUGS (13)
  1. CARISOPRODOL (CARISOPRODOL) UNKNOWN [Suspect]
     Active Substance: CARISOPRODOL
  2. NICOTINE. [Suspect]
     Active Substance: NICOTINE
  3. SUMATRIPTAN. [Suspect]
     Active Substance: SUMATRIPTAN
  4. TRIMPETHOPRIM (TRIMETHOPRIM) UNKNOWN [Suspect]
     Active Substance: TRIMETHOPRIM
  5. GABAPENTIN (GABAPENTIN) UNKNOWN [Suspect]
     Active Substance: GABAPENTIN
  6. HYDROXYZINE (HYDROXYZINE) UNKNOWN [Suspect]
     Active Substance: HYDROXYZINE HYDROCHLORIDE
  7. FLUOXETINE [Suspect]
     Active Substance: FLUOXETINE\FLUOXETINE HYDROCHLORIDE
  8. MEPROBAMATE. [Suspect]
     Active Substance: MEPROBAMATE
  9. ONDANSETRON (ONDANSETRON) UNKNOWN [Suspect]
     Active Substance: ONDANSETRON
  10. DEXTROMETHORPHAN [Suspect]
     Active Substance: DEXTROMETHORPHAN
  11. ORPHENADRINE [Suspect]
     Active Substance: ORPHENADRINE
  12. DOXYLAMINE [Suspect]
     Active Substance: DOXYLAMINE
  13. HYDROMORPHONE [Suspect]
     Active Substance: HYDROMORPHONE

REACTIONS (8)
  - Pulmonary oedema [None]
  - Toxicity to various agents [None]
  - Coronary artery occlusion [None]
  - Accidental death [None]
  - Vomiting [None]
  - Aspiration [None]
  - Drug interaction [None]
  - Unresponsive to stimuli [None]
